FAERS Safety Report 5699569-9 (Version None)
Quarter: 2008Q2

REPORT INFORMATION
  Report Type: 
  Country: None (occurrence: None)
  Receive Date: 20080410
  Receipt Date: 20080403
  Transmission Date: 20081010
  Serious: Yes (Hospitalization)
  Sender: FDA-Public Use
  Company Number: US-ABBOTT-08P-163-0445436-00

PATIENT
  Sex: Female
  Weight: 72.186 kg

DRUGS (3)
  1. HUMIRA [Suspect]
     Indication: RHEUMATOID ARTHRITIS
     Route: 058
     Dates: start: 20071101
  2. LEFLUNOMIDE [Concomitant]
     Indication: RHEUMATOID ARTHRITIS
     Route: 048
  3. UNKNOWN MEDS FOR STOMACH [Concomitant]
     Indication: PROPHYLAXIS

REACTIONS (1)
  - KNEE ARTHROPLASTY [None]
